FAERS Safety Report 13775713 (Version 7)
Quarter: 2018Q4

REPORT INFORMATION
  Report Type: Spontaneous
  Country: US (occurrence: US)
  Receive Date: 20170720
  Receipt Date: 20181016
  Transmission Date: 20190204
  Serious: Yes (Hospitalization, Other)
  Sender: FDA-Public Use
  Company Number: US-SA-2017SA131938

PATIENT
  Age: 66 Year
  Sex: Female

DRUGS (1)
  1. CEREZYME [Suspect]
     Active Substance: IMIGLUCERASE
     Dosage: 2800 DF,QOW
     Route: 041
     Dates: start: 20161119

REACTIONS (4)
  - Neoplasm malignant [Unknown]
  - Central venous catheterisation [Unknown]
  - Vertigo [Unknown]
  - Toxicity to various agents [Unknown]

NARRATIVE: CASE EVENT DATE: 201809
